FAERS Safety Report 18353106 (Version 1)
Quarter: 2020Q4

REPORT INFORMATION
  Report Type: Spontaneous
  Country: US (occurrence: US)
  Receive Date: 20201007
  Receipt Date: 20201007
  Transmission Date: 20210114
  Serious: No
  Sender: FDA-Public Use
  Company Number: US-SHIRE-US202032318

PATIENT
  Sex: Female
  Weight: 45 kg

DRUGS (1)
  1. TAKHZYRO [Suspect]
     Active Substance: LANADELUMAB-FLYO
     Indication: HEREDITARY ANGIOEDEMA
     Dosage: UNK UNK, 1X/2WKS
     Route: 065

REACTIONS (2)
  - Injection site pain [Unknown]
  - Underweight [Unknown]
